FAERS Safety Report 10035225 (Version 1)
Quarter: 2014Q1

REPORT INFORMATION
  Report Type: Spontaneous
  Country: US (occurrence: None)
  Receive Date: 20140306
  Receipt Date: 20140306
  Transmission Date: 20141002
  Serious: Yes (Other)
  Sender: FDA-Public Use
  Company Number: 163-21880-13062655

PATIENT
  Age: 75 Year
  Sex: Male

DRUGS (1)
  1. REVLIMID [Suspect]
     Indication: PLASMA CELL MYELOMA
     Dosage: 11.25 MG, 21 IN 28 D,  PO 11/2012 - UNKNOWN THERAPY DATES
     Route: 048
     Dates: start: 201211

REACTIONS (2)
  - Renal failure [None]
  - Platelet count decreased [None]
